FAERS Safety Report 5234329-4 (Version None)
Quarter: 2007Q1

REPORT INFORMATION
  Report Type: 
  Country: None (occurrence: None)
  Receive Date: 20070207
  Receipt Date: 20070130
  Transmission Date: 20070707
  Serious: Yes (Other)
  Sender: FDA-Public Use
  Company Number: 1022556-2007-00025

PATIENT
  Sex: Male
  Weight: 79.3795 kg

DRUGS (1)
  1. UNISOM [Suspect]
     Dosage: 5 OR 6 TABS

REACTIONS (2)
  - HEADACHE [None]
  - NAUSEA [None]
